FAERS Safety Report 10691914 (Version 7)
Quarter: 2015Q2

REPORT INFORMATION
  Report Type: Report from Study
  Country: GB (occurrence: GB)
  Receive Date: 20150105
  Receipt Date: 20150511
  Transmission Date: 20150821
  Serious: Yes (Hospitalization, Other)
  Sender: FDA-Public Use
  Company Number: GB-GLAXOSMITHKLINE-GB2014GSK044799

PATIENT
  Age: 58 Year
  Sex: Female
  Weight: 50.1 kg

DRUGS (9)
  1. LAXIDO [Concomitant]
     Active Substance: POLYETHYLENE GLYCOL 3350\POTASSIUM CHLORIDE\SODIUM BICARBONATE\SODIUM CHLORIDE
  2. PARACETAMOL [Concomitant]
     Active Substance: ACETAMINOPHEN
  3. PAZOPANIB [Suspect]
     Active Substance: PAZOPANIB
     Indication: BLADDER TRANSITIONAL CELL CARCINOMA
     Dosage: 800 MG, QD
     Route: 048
     Dates: start: 20141002, end: 20141214
  4. LANSOPRAZOLE. [Concomitant]
     Active Substance: LANSOPRAZOLE
  5. AMLODIPINE [Concomitant]
     Active Substance: AMLODIPINE BESYLATE
     Dosage: 5 MG, UNK
     Route: 048
     Dates: start: 20141127, end: 20141229
  6. IBRUFEN [Concomitant]
     Indication: ANALGESIC THERAPY
     Dosage: 400 MG, QD
     Route: 048
     Dates: start: 201412
  7. GLYCERIN SUPPOSITORY [Concomitant]
     Active Substance: GLYCERIN
  8. SERTRALINE [Concomitant]
     Active Substance: SERTRALINE HYDROCHLORIDE
     Indication: DEPRESSION
     Dosage: 25 MG, QD
     Route: 048
     Dates: start: 20140930
  9. ORAMORPH SR SUSTAINED RELEASE [Concomitant]
     Active Substance: MORPHINE SULFATE

REACTIONS (3)
  - Prophylaxis of nausea and vomiting [Not Recovered/Not Resolved]
  - Back pain [Not Recovered/Not Resolved]
  - Bartholin^s cyst [Unknown]

NARRATIVE: CASE EVENT DATE: 20141214
